FAERS Safety Report 6917286-1 (Version None)
Quarter: 2010Q3

REPORT INFORMATION
  Report Type: 
  Country: None (occurrence: None)
  Receive Date: 20100805
  Receipt Date: 20100724
  Transmission Date: 20110219
  Serious: Yes (Hospitalization)
  Sender: FDA-Public Use
  Company Number: VISP-NO-1007S-0377

PATIENT
  Age: 76 Year
  Sex: Male
  Weight: 180 kg

DRUGS (4)
  1. VISIPAQUE [Suspect]
     Indication: CARDIAC FUNCTION TEST
     Dosage: 90 ML, SINGLE DOSE, I.V.
     Route: 042
     Dates: start: 20100620, end: 20100620
  2. ANTIHYPERTENSIVE TREATMENT [Concomitant]
  3. ANTI-DIABETIC TREATMENT [Concomitant]
  4. ANTI-DIABETIC TREATMENT [Concomitant]

REACTIONS (2)
  - CHILLS [None]
  - PYREXIA [None]
